FAERS Safety Report 25815204 (Version 1)
Quarter: 2025Q3

REPORT INFORMATION
  Report Type: Spontaneous
  Country: US (occurrence: US)
  Receive Date: 20250918
  Receipt Date: 20250918
  Transmission Date: 20251020
  Serious: No
  Sender: UPSHER SMITH LABORATORIES
  Company Number: US-UPSHER-SMITH LABORATORIES, LLC-20250701043

PATIENT
  Sex: Female
  Weight: 68.027 kg

DRUGS (1)
  1. BRIMONIDINE TARTRATE AND TIMOLOL MALEATE OPHTHALMIC SOLUTION 0.2% EQ 0 [Suspect]
     Active Substance: BRIMONIDINE TARTRATE\TIMOLOL MALEATE
     Indication: Glaucoma
     Route: 047
     Dates: end: 202408

REACTIONS (2)
  - Eye allergy [Unknown]
  - Product quality issue [Unknown]

NARRATIVE: CASE EVENT DATE: 20240101
